FAERS Safety Report 13233266 (Version 5)
Quarter: 2018Q2

REPORT INFORMATION
  Report Type: Report from Study
  Country: None (occurrence: US)
  Receive Date: 20170215
  Receipt Date: 20180417
  Transmission Date: 20180711
  Serious: Yes (Other)
  Sender: FDA-Public Use
  Company Number: US-ABBVIE-17K-163-1868232-00

PATIENT
  Sex: Male

DRUGS (10)
  1. VALIUM [Concomitant]
     Active Substance: DIAZEPAM
     Indication: PRODUCT USED FOR UNKNOWN INDICATION
  2. HUMIRA [Suspect]
     Active Substance: ADALIMUMAB
     Indication: ANKYLOSING SPONDYLITIS
     Route: 058
     Dates: start: 2007
  3. TRAMADOL. [Concomitant]
     Active Substance: TRAMADOL
     Indication: PRODUCT USED FOR UNKNOWN INDICATION
  4. HUMIRA [Suspect]
     Active Substance: ADALIMUMAB
     Route: 058
     Dates: start: 20170215
  5. HUMIRA [Suspect]
     Active Substance: ADALIMUMAB
     Route: 058
     Dates: start: 2011, end: 20161219
  6. MORPHINE [Concomitant]
     Active Substance: MORPHINE
     Indication: PRODUCT USED FOR UNKNOWN INDICATION
  7. LISINOPRIL/HCTZ [Concomitant]
     Active Substance: HYDROCHLOROTHIAZIDE\LISINOPRIL
     Indication: PRODUCT USED FOR UNKNOWN INDICATION
  8. PREDNISONE. [Concomitant]
     Active Substance: PREDNISONE
     Indication: PRODUCT USED FOR UNKNOWN INDICATION
  9. CYMBALTA [Concomitant]
     Active Substance: DULOXETINE HYDROCHLORIDE
     Indication: PRODUCT USED FOR UNKNOWN INDICATION
  10. PRILOSEC [Concomitant]
     Active Substance: OMEPRAZOLE MAGNESIUM
     Indication: PRODUCT USED FOR UNKNOWN INDICATION

REACTIONS (23)
  - Benign renal neoplasm [Recovered/Resolved]
  - Arthralgia [Not Recovered/Not Resolved]
  - Musculoskeletal pain [Not Recovered/Not Resolved]
  - Rotator cuff syndrome [Recovering/Resolving]
  - Muscle rupture [Recovering/Resolving]
  - Gait disturbance [Not Recovered/Not Resolved]
  - Eye disorder [Unknown]
  - Neck pain [Not Recovered/Not Resolved]
  - Glaucoma [Not Recovered/Not Resolved]
  - Influenza [Recovered/Resolved]
  - Benign neoplasm of bladder [Recovered/Resolved]
  - Deafness [Not Recovered/Not Resolved]
  - Fall [Recovered/Resolved]
  - Ankylosing spondylitis [Recovered/Resolved]
  - Arthritis [Not Recovered/Not Resolved]
  - Back pain [Not Recovered/Not Resolved]
  - White blood cell count increased [Unknown]
  - Musculoskeletal stiffness [Not Recovered/Not Resolved]
  - Carpal tunnel syndrome [Recovered/Resolved]
  - Renal neoplasm [Recovered/Resolved]
  - Large intestine polyp [Recovered/Resolved]
  - Nephrolithiasis [Recovered/Resolved]
  - Sepsis [Unknown]

NARRATIVE: CASE EVENT DATE: 2013
